FAERS Safety Report 6071128-8 (Version None)
Quarter: 2009Q1

REPORT INFORMATION
  Report Type: 
  Country: None (occurrence: None)
  Receive Date: 20090209
  Receipt Date: 20090127
  Transmission Date: 20090719
  Serious: Yes (Hospitalization, Other)
  Sender: FDA-Public Use
  Company Number: CA-ELI_LILLY_AND_COMPANY-CA200901004942

PATIENT
  Age: 75 Year
  Sex: Female

DRUGS (12)
  1. FORTEO [Suspect]
     Indication: OSTEOPOROSIS
     Dosage: 20 UG, DAILY (1/D)
     Route: 058
     Dates: start: 20080122
  2. DIAMICRON [Concomitant]
  3. AVANDIA [Concomitant]
  4. ALTACE [Concomitant]
  5. LIPITOR [Concomitant]
  6. SYNTHROID [Concomitant]
  7. NOVASEN [Concomitant]
  8. CARBACHOL [Concomitant]
  9. TIAZAC [Concomitant]
  10. TYLENOL                                 /SCH/ [Concomitant]
  11. VITAMIN D [Concomitant]
  12. LOVENOX [Concomitant]

REACTIONS (4)
  - BACK PAIN [None]
  - FALL [None]
  - HIP FRACTURE [None]
  - PAIN IN EXTREMITY [None]
